FAERS Safety Report 4966013-6 (Version None)
Quarter: 2006Q2

REPORT INFORMATION
  Report Type: 
  Country: None (occurrence: None)
  Receive Date: 20060407
  Receipt Date: 20060207
  Transmission Date: 20061013
  Serious: Yes (Hospitalization)
  Sender: FDA-Public Use
  Company Number: FR-GLAXOSMITHKLINE-B0409254A

PATIENT
  Age: 10 Year
  Sex: Male
  Weight: 44 kg

DRUGS (3)
  1. CLAMOXYL [Suspect]
     Route: 048
     Dates: start: 20051122, end: 20051129
  2. CELESTENE [Suspect]
     Route: 048
     Dates: start: 20051122, end: 20051129
  3. DEXTROMETHORPHAN HYDROBROMIDE [Suspect]
     Route: 048
     Dates: end: 20051129

REACTIONS (6)
  - CONJUNCTIVAL ULCER [None]
  - DERMATITIS BULLOUS [None]
  - ENANTHEMA [None]
  - ORAL SOFT TISSUE DISORDER [None]
  - PRURITUS [None]
  - STEVENS-JOHNSON SYNDROME [None]
